FAERS Safety Report 8789830 (Version 2)
Quarter: 2012Q4

REPORT INFORMATION
  Report Type: 
  Country: US (occurrence: US)
  Receive Date: 20120917
  Receipt Date: 20121128
  Transmission Date: 20130627
  Serious: Yes (Other)
  Sender: FDA-Public Use
  Company Number: US-ASTRAZENECA-2012SE26564

PATIENT
  Age: 86 Year
  Sex: Male

DRUGS (2)
  1. CRESTOR [Suspect]
     Dosage: DAILY
     Route: 048
  2. CRESTOR [Suspect]
     Dosage: TWICE A DAY
     Route: 048

REACTIONS (2)
  - Carotid artery stenosis [Unknown]
  - Memory impairment [Unknown]
